FAERS Safety Report 15113915 (Version 1)
Quarter: 2018Q3

REPORT INFORMATION
  Report Type: Report from Study
  Country: US (occurrence: US)
  Receive Date: 20180706
  Receipt Date: 20180706
  Transmission Date: 20181010
  Serious: Yes (Other)
  Sender: FDA-Public Use
  Company Number: US-ROCHE-2150061

PATIENT
  Sex: Female

DRUGS (1)
  1. OCREVUS [Suspect]
     Active Substance: OCRELIZUMAB
     Indication: RELAPSING MULTIPLE SCLEROSIS
     Dosage: NEXT OCRE INFUSION DUE ON 10/JUL/2018
     Route: 042
     Dates: start: 201806

REACTIONS (3)
  - Laceration [Unknown]
  - Fall [Unknown]
  - Localised infection [Not Recovered/Not Resolved]
